FAERS Safety Report 6166262-8 (Version None)
Quarter: 2009Q2

REPORT INFORMATION
  Report Type: 
  Country: None (occurrence: None)
  Receive Date: 20090424
  Receipt Date: 20090422
  Transmission Date: 20091009
  Serious: Yes (Hospitalization)
  Sender: FDA-Public Use
  Company Number: TW-BRISTOL-MYERS SQUIBB COMPANY-14584544

PATIENT
  Age: 26 Year
  Sex: Male

DRUGS (1)
  1. ABILIFY [Suspect]
     Dosage: INCREASED TO 30MG/DAY DECREASED TO 20MG/DAY AGAIN INCREASED TO 30MG/DAY

REACTIONS (3)
  - FEELING JITTERY [None]
  - INSOMNIA [None]
  - PSYCHOTIC DISORDER [None]
